FAERS Safety Report 4635284-8 (Version None)
Quarter: 2005Q2

REPORT INFORMATION
  Report Type: 
  Country: None (occurrence: None)
  Receive Date: 20050414
  Receipt Date: 20050405
  Transmission Date: 20051028
  Serious: Yes (Hospitalization)
  Sender: FDA-Public Use
  Company Number: PHBS2005MX04924

PATIENT
  Sex: Male

DRUGS (1)
  1. DESFERAL [Suspect]
     Dosage: 2 G/D
     Dates: start: 20050101

REACTIONS (4)
  - EPISTAXIS [None]
  - HEADACHE [None]
  - INFECTION [None]
  - SUBARACHNOID HAEMORRHAGE [None]
